FAERS Safety Report 8130139-9 (Version None)
Quarter: 2012Q1

REPORT INFORMATION
  Report Type: 
  Country: None (occurrence: None)
  Receive Date: 20120210
  Receipt Date: 20120206
  Transmission Date: 20120608
  Serious: Yes (Death, Hospitalization, Other)
  Sender: FDA-Public Use
  Company Number: FR-PFIZER INC-2005030325

PATIENT
  Age: 55 Year
  Sex: Male

DRUGS (10)
  1. PREDNISONE TAB [Concomitant]
     Route: 065
     Dates: start: 20041214, end: 20041230
  2. PANTOPRAZOLE [Concomitant]
     Route: 048
     Dates: start: 20041214, end: 20050114
  3. BACTRIM [Concomitant]
     Route: 065
     Dates: start: 20041214, end: 20041230
  4. GENTAMICIN [Suspect]
     Indication: ENDOCARDITIS
     Route: 042
     Dates: start: 20041222, end: 20050114
  5. AMOXICILLIN TRIHYDRATE [Suspect]
     Indication: ENDOCARDITIS
     Dosage: 2 G, 6XDAY
     Route: 048
     Dates: start: 20041222, end: 20050114
  6. FOSCAVIR [Suspect]
     Indication: CYTOMEGALOVIRUS INFECTION
     Route: 042
     Dates: start: 20041230, end: 20050114
  7. FUNGIZONE [Suspect]
     Indication: ASPERGILLOSIS
     Route: 042
     Dates: start: 20050104, end: 20050114
  8. PANTOPRAZOLE [Suspect]
     Indication: OESOPHAGEAL ULCER
     Dosage: 40 MG, 1X/DAY
     Route: 048
     Dates: start: 20041214, end: 20050114
  9. VFEND [Suspect]
     Indication: BRONCHOPULMONARY ASPERGILLOSIS
     Route: 048
     Dates: start: 20041230, end: 20050104
  10. CYMEVAN [Suspect]
     Indication: CYTOMEGALOVIRUS INFECTION
     Dosage: 160 MG, 1X/DAY
     Route: 042
     Dates: start: 20041214, end: 20050114

REACTIONS (9)
  - ENDOCARDITIS BACTERIAL [None]
  - CONDITION AGGRAVATED [None]
  - CYTOMEGALOVIRUS INFECTION [None]
  - FEBRILE BONE MARROW APLASIA [None]
  - BILIRUBIN CONJUGATED INCREASED [None]
  - MULTI-ORGAN FAILURE [None]
  - TOXIC EPIDERMAL NECROLYSIS [None]
  - CHOLESTASIS [None]
  - BRONCHOPULMONARY ASPERGILLOSIS [None]
